FAERS Safety Report 4772485-2 (Version None)
Quarter: 2005Q3

REPORT INFORMATION
  Report Type: 
  Country: None (occurrence: None)
  Receive Date: 20050914
  Receipt Date: 20041118
  Transmission Date: 20060218
  Serious: Yes (Hospitalization)
  Sender: FDA-Public Use
  Company Number: 163-20785-04110440

PATIENT
  Age: 73 Year
  Sex: Female

DRUGS (10)
  1. THALOMID [Suspect]
     Indication: MULTIPLE MYELOMA
     Dosage: 50 MG, QD, ORAL
     Route: 048
     Dates: start: 20041110
  2. COUMADIN [Concomitant]
  3. DIGOXIN [Concomitant]
  4. NORVASC [Concomitant]
  5. OMEPRAZOLE [Concomitant]
  6. PREDNISONE [Concomitant]
  7. VASOTEC [Concomitant]
  8. LASIX [Concomitant]
  9. TOPROL-XL [Concomitant]
  10. CARDURA [Concomitant]

REACTIONS (1)
  - CARDIAC FAILURE CONGESTIVE [None]
